FAERS Safety Report 6914342-9 (Version None)
Quarter: 2010Q3

REPORT INFORMATION
  Report Type: 
  Country: None (occurrence: None)
  Receive Date: 20100809
  Receipt Date: 20100730
  Transmission Date: 20110219
  Serious: Yes (Congenital Anomaly)
  Sender: FDA-Public Use
  Company Number: US-ABBOTT-08P-163-0485182-00

PATIENT
  Weight: 3.632 kg

DRUGS (3)
  1. KALETRA [Suspect]
     Indication: DRUG EXPOSURE DURING PREGNANCY
     Route: 064
  2. KALETRA [Suspect]
     Route: 064
  3. COMBIVIR [Suspect]
     Indication: DRUG EXPOSURE DURING PREGNANCY
     Route: 064

REACTIONS (3)
  - CONGENITAL CYST [None]
  - DRUG EXPOSURE DURING PREGNANCY [None]
  - THYROGLOSSAL CYST [None]
